FAERS Safety Report 17994485 (Version 1)
Quarter: 2020Q3

REPORT INFORMATION
  Report Type: Spontaneous
  Country: US (occurrence: US)
  Receive Date: 20200708
  Receipt Date: 20200708
  Transmission Date: 20201103
  Serious: Yes (Death, Life-Threatening, Hospitalization)
  Sender: FDA-Public Use
  Company Number: None

PATIENT
  Age: 68 Year
  Sex: Male
  Weight: 78.75 kg

DRUGS (2)
  1. RYTARY [Suspect]
     Active Substance: CARBIDOPA\LEVODOPA
     Indication: PARKINSON^S DISEASE
     Route: 048
     Dates: start: 20120101, end: 20191207
  2. RYTARY [Suspect]
     Active Substance: CARBIDOPA\LEVODOPA
     Indication: PARKINSON^S DISEASE
     Dosage: ?          QUANTITY:4 CAPSULE(S);?
     Route: 048
     Dates: start: 20120101, end: 20191207

REACTIONS (2)
  - Cerebrovascular accident [None]
  - Epistaxis [None]

NARRATIVE: CASE EVENT DATE: 20190220
